FAERS Safety Report 6347068-3 (Version None)
Quarter: 2009Q3

REPORT INFORMATION
  Report Type: 
  Country: None (occurrence: None)
  Receive Date: 20090909
  Receipt Date: 20090909
  Transmission Date: 20100115
  Serious: Yes (Life-Threatening)
  Sender: FDA-Public Use
  Company Number: None

PATIENT
  Age: 39 Year
  Sex: Male
  Weight: 186 kg

DRUGS (2)
  1. LOVENOX [Suspect]
     Indication: CARDIAC FIBRILLATION
     Dosage: 150 MG Q12 SQ
     Route: 058
     Dates: start: 20090904, end: 20090906
  2. LOVENOX [Suspect]
     Indication: PULMONARY EMBOLISM
     Dosage: 150 MG Q12 SQ
     Route: 058
     Dates: start: 20090904, end: 20090906

REACTIONS (3)
  - CARDIO-RESPIRATORY ARREST [None]
  - CREATININE RENAL CLEARANCE DECREASED [None]
  - INTRACRANIAL PRESSURE INCREASED [None]
